FAERS Safety Report 7267091-4 (Version None)
Quarter: 2011Q1

REPORT INFORMATION
  Report Type: 
  Country: None (occurrence: None)
  Receive Date: 20110201
  Receipt Date: 20110121
  Transmission Date: 20110831
  Serious: No
  Sender: FDA-Public Use
  Company Number: PHHY2010CA86128

PATIENT
  Sex: Female

DRUGS (5)
  1. ATENOLOL [Concomitant]
     Dosage: 25 MG, QD
  2. ZADITOR [Suspect]
     Dosage: UNK
     Dates: start: 20090213
  3. APO-K [Concomitant]
     Dosage: 600 MG, QD
  4. NORVASC [Concomitant]
     Dosage: 5.25 MG, QD
  5. ATIVAN [Concomitant]
     Dosage: 0.5 MG, PRN
     Route: 058

REACTIONS (4)
  - EYE PAIN [None]
  - OCULAR DISCOMFORT [None]
  - EYE SWELLING [None]
  - INTRAOCULAR PRESSURE INCREASED [None]
